FAERS Safety Report 7469090-6 (Version None)
Quarter: 2011Q2

REPORT INFORMATION
  Report Type: 
  Country: None (occurrence: None)
  Receive Date: 20110429
  Receipt Date: 20110408
  Transmission Date: 20111010
  Serious: Yes (Life-Threatening, Hospitalization)
  Sender: FDA-Public Use
  Company Number: AUR-APL-2011-01240

PATIENT
  Age: 56 Year
  Sex: Female
  Weight: 57.15 kg

DRUGS (8)
  1. BISOPROLOL FUMARATE [Concomitant]
  2. GLICLAZIDE [Concomitant]
  3. GTN (GLYCERYL TRINITRATE [Concomitant]
  4. METFORMIN HCL [Suspect]
     Indication: TYPE 2 DIABETES MELLITUS
     Dosage: ORAL
     Route: 048
     Dates: start: 20080301
  5. CLOPIDOGREL [Concomitant]
  6. ASPIRIN [Concomitant]
  7. ATORVASTATIN [Concomitant]
  8. OMEPRAZOLE [Concomitant]

REACTIONS (9)
  - HYPOGLYCAEMIA [None]
  - VOMITING [None]
  - CORONARY ARTERY BYPASS [None]
  - COMA SCALE ABNORMAL [None]
  - HAEMODIALYSIS [None]
  - LACTIC ACIDOSIS [None]
  - HYPOPHAGIA [None]
  - FLUID INTAKE REDUCED [None]
  - RENAL FAILURE ACUTE [None]
